FAERS Safety Report 4447474-8 (Version None)
Quarter: 2004Q3

REPORT INFORMATION
  Report Type: 
  Country: None (occurrence: None)
  Receive Date: 20040823
  Receipt Date: 20040628
  Transmission Date: 20050211
  Serious: No
  Sender: FDA-Public Use
  Company Number: PHEH2004US05004

PATIENT
  Age: 65 Year
  Sex: Female

DRUGS (6)
  1. ZELNORM [Suspect]
     Indication: CONSTIPATION
     Dosage: 6 MG BID ORAL
     Route: 048
     Dates: start: 20040301, end: 20040504
  2. ELMIRON [Concomitant]
  3. AMITRIPTYLINE HCL [Concomitant]
  4. LIBRIUM ^HOFFMAN^ (CHLORDIAZEPOXIDE HYDROCHLORIDE) [Concomitant]
  5. DUONEB (SALBUTAMOL SULFATE) [Concomitant]
  6. ADVAIR (SALMETEROL XINAFOATE) [Concomitant]

REACTIONS (3)
  - BLADDER SPASM [None]
  - LOOSE STOOLS [None]
  - POLLAKIURIA [None]
